FAERS Safety Report 25273943 (Version 1)
Quarter: 2025Q2

REPORT INFORMATION
  Report Type: Spontaneous
  Country: US (occurrence: US)
  Receive Date: 20250506
  Receipt Date: 20250506
  Transmission Date: 20250716
  Serious: No
  Sender: ROCHE
  Company Number: US-ROCHE-10000271511

PATIENT
  Age: 45 Year
  Sex: Male

DRUGS (2)
  1. OCREVUS [Suspect]
     Active Substance: OCRELIZUMAB
     Indication: Multiple sclerosis
     Route: 058
     Dates: start: 2021
  2. MAYZENT [Concomitant]
     Active Substance: SIPONIMOD

REACTIONS (2)
  - Therapeutic response shortened [Unknown]
  - Feeling abnormal [Unknown]
